FAERS Safety Report 8811035 (Version 2)
Quarter: 2012Q4

REPORT INFORMATION
  Report Type: 
  Country: US (occurrence: US)
  Receive Date: 20120927
  Receipt Date: 20121025
  Transmission Date: 20130627
  Serious: Yes (Disabling)
  Sender: FDA-Public Use
  Company Number: US-NAPPMUNDI-USA-2012-0093463

PATIENT
  Age: 49 Year
  Sex: Female
  Weight: 121.9 kg

DRUGS (2)
  1. BUTRANS [Suspect]
     Indication: HEADACHE
     Dosage: 10 mcg, q1h
     Route: 062
     Dates: start: 20120823, end: 20120908
  2. BUTRANS [Suspect]
     Indication: PAIN

REACTIONS (1)
  - Motor dysfunction [Recovered/Resolved]
